FAERS Safety Report 4389534-6 (Version None)
Quarter: 2004Q2

REPORT INFORMATION
  Report Type: 
  Country: None (occurrence: None)
  Receive Date: 20040628
  Receipt Date: 20040611
  Transmission Date: 20050107
  Serious: Yes (Hospitalization)
  Sender: FDA-Public Use
  Company Number: M2004-0688

PATIENT
  Age: 49 Year
  Sex: Male

DRUGS (1)
  1. RANITIDINE 150MG TABLETS, UNKNOWN MANUFACTURER [Suspect]
     Indication: ABDOMINAL PAIN UPPER

REACTIONS (8)
  - ACHLORHYDRIA [None]
  - ALCOHOL USE [None]
  - BACTERIA STOOL IDENTIFIED [None]
  - BACTERIAL INFECTION [None]
  - CLOSTRIDIAL INFECTION [None]
  - DRUG SCREEN POSITIVE [None]
  - GIARDIASIS [None]
  - PARASITIC INFECTION INTESTINAL [None]
